FAERS Safety Report 4351785-4 (Version None)
Quarter: 2004Q2

REPORT INFORMATION
  Report Type: 
  Country: None (occurrence: None)
  Receive Date: 20040429
  Receipt Date: 20040303
  Transmission Date: 20050107
  Serious: No
  Sender: FDA-Public Use
  Company Number: 2004-113781-NL

PATIENT
  Age: 26 Year
  Sex: Female
  Weight: 55.5 kg

DRUGS (2)
  1. NUVARING [Suspect]
     Indication: CONTRACEPTION
     Dosage: DF DAILY VAGINAL
     Route: 067
     Dates: start: 20040224, end: 20040317
  2. GINSENG [Concomitant]

REACTIONS (4)
  - HEADACHE [None]
  - MENORRHAGIA [None]
  - NAUSEA [None]
  - VAGINAL DISCHARGE [None]
